FAERS Safety Report 13269115 (Version 1)
Quarter: 2017Q1

REPORT INFORMATION
  Report Type: Spontaneous
  Country: US (occurrence: US)
  Receive Date: 20170224
  Receipt Date: 20170224
  Transmission Date: 20170428
  Serious: Yes (Other)
  Sender: FDA-Public Use
  Company Number: US-ALEXION-A201701601

PATIENT
  Age: 5 Year
  Sex: Female

DRUGS (2)
  1. SOLIRIS [Suspect]
     Active Substance: ECULIZUMAB
     Indication: THROMBOTIC MICROANGIOPATHY
     Dosage: UNK
     Route: 042
     Dates: start: 20170214
  2. SOLIRIS [Suspect]
     Active Substance: ECULIZUMAB
     Indication: OFF LABEL USE

REACTIONS (12)
  - Proteinuria [Unknown]
  - Blood bilirubin increased [Unknown]
  - Diarrhoea [Unknown]
  - Haemoptysis [Unknown]
  - Vomiting [Unknown]
  - Positive end-expiratory pressure [Recovering/Resolving]
  - Critical illness [Not Recovered/Not Resolved]
  - Blood gases abnormal [Recovering/Resolving]
  - Lung disorder [Recovering/Resolving]
  - Adenovirus infection [Unknown]
  - Platelet count decreased [Recovering/Resolving]
  - Off label use [Recovering/Resolving]

NARRATIVE: CASE EVENT DATE: 201702
